FAERS Safety Report 6520420-9 (Version None)
Quarter: 2009Q4

REPORT INFORMATION
  Report Type: 
  Country: None (occurrence: None)
  Receive Date: 20091229
  Receipt Date: 20091218
  Transmission Date: 20100525
  Serious: Yes (Hospitalization)
  Sender: FDA-Public Use
  Company Number: B0619874A

PATIENT
  Sex: Male

DRUGS (1)
  1. NIQUITIN 21MG [Suspect]
     Indication: TOBACCO USER
     Dosage: 2PAT PER DAY
     Route: 062
     Dates: start: 20091030, end: 20091216

REACTIONS (2)
  - INFARCTION [None]
  - OVERDOSE [None]
